FAERS Safety Report 5239494-0 (Version None)
Quarter: 2007Q1

REPORT INFORMATION
  Report Type: 
  Country: None (occurrence: None)
  Receive Date: 20070214
  Receipt Date: 20070214
  Transmission Date: 20070707
  Serious: Yes (Hospitalization)
  Sender: FDA-Public Use
  Company Number: None

PATIENT
  Age: 51 Year
  Sex: Male
  Weight: 90.1 kg

DRUGS (5)
  1. ERBITUX [Suspect]
     Indication: TONSIL CANCER
     Dosage: 250 MG/M2 ONCE / WEEK IV DRIP
     Route: 041
     Dates: start: 20061211, end: 20070205
  2. ERBITUX [Concomitant]
  3. CARBOPLATIN [Concomitant]
  4. PACLITAXEL [Concomitant]
  5. RADIATION THERAPY [Concomitant]

REACTIONS (7)
  - COUGH [None]
  - DEHYDRATION [None]
  - FEEDING TUBE COMPLICATION [None]
  - MUCOSAL INFLAMMATION [None]
  - NAUSEA [None]
  - SALIVA ALTERED [None]
  - VOMITING [None]
